FAERS Safety Report 12441940 (Version 1)
Quarter: 2016Q2

REPORT INFORMATION
  Report Type: Spontaneous
  Country: US (occurrence: None)
  Receive Date: 20160606
  Receipt Date: 20160606
  Transmission Date: 20160815
  Serious: Yes (Hospitalization)
  Sender: FDA-Public Use
  Company Number: None

PATIENT
  Age: 65 Year
  Sex: Male
  Weight: 56.25 kg

DRUGS (7)
  1. METFORMIN HYDROCHLORIDE. [Suspect]
     Active Substance: METFORMIN HYDROCHLORIDE
     Dates: end: 20160522
  2. CLARITIN [Concomitant]
     Active Substance: LORATADINE
  3. COMPAZINE [Concomitant]
     Active Substance: PROCHLORPERAZINE MALEATE
  4. TAXOL [Suspect]
     Active Substance: PACLITAXEL
     Dates: end: 20130511
  5. CARBOPLATIN. [Suspect]
     Active Substance: CARBOPLATIN
     Dates: end: 20160511
  6. ONDANSETRON [Concomitant]
     Active Substance: ONDANSETRON
  7. PHENERGAN [Concomitant]
     Active Substance: PROMETHAZINE HYDROCHLORIDE

REACTIONS (5)
  - Pneumonia [None]
  - Chest pain [None]
  - Dyspnoea [None]
  - Pneumothorax [None]
  - Rhinovirus infection [None]

NARRATIVE: CASE EVENT DATE: 20160522
